FAERS Safety Report 5428950-8 (Version None)
Quarter: 2007Q3

REPORT INFORMATION
  Report Type: 
  Country: None (occurrence: None)
  Receive Date: 20070827
  Receipt Date: 20070817
  Transmission Date: 20080115
  Serious: No
  Sender: FDA-Public Use
  Company Number: 20074032

PATIENT
  Age: 5 Year
  Sex: Male

DRUGS (1)
  1. LIORESAL [Suspect]
     Indication: MUSCLE SPASTICITY
     Dosage: DAILY, INTRATHECAL
     Route: 037

REACTIONS (5)
  - CEREBRAL VENTRICLE DILATATION [None]
  - DEVICE INTERACTION [None]
  - FEEDING DISORDER [None]
  - FOOD INTOLERANCE [None]
  - VENTRICULOPERITONEAL SHUNT MALFUNCTION [None]
